FAERS Safety Report 20313881 (Version 2)
Quarter: 2022Q1

REPORT INFORMATION
  Report Type: Spontaneous
  Country: US (occurrence: US)
  Receive Date: 20220109
  Receipt Date: 20220205
  Transmission Date: 20220424
  Serious: No
  Sender: FDA-Public Use
  Company Number: US-SA-SAC20220103000413

PATIENT
  Age: 8 Year
  Sex: Female

DRUGS (2)
  1. DUPIXENT [Suspect]
     Active Substance: DUPILUMAB
     Indication: Dermatitis atopic
     Dosage: 300 MG, Q4W
     Route: 058
     Dates: start: 20210913, end: 20211222
  2. DUPIXENT [Suspect]
     Active Substance: DUPILUMAB
     Dosage: 100 MG, QOW
     Route: 058

REACTIONS (7)
  - Lacrimation increased [Unknown]
  - Swelling of eyelid [Recovering/Resolving]
  - Skin weeping [Unknown]
  - Eye irritation [Recovering/Resolving]
  - Eyelid exfoliation [Recovering/Resolving]
  - Eyelid margin crusting [Recovering/Resolving]
  - Product use issue [Unknown]

NARRATIVE: CASE EVENT DATE: 20210913
